FAERS Safety Report 21781327 (Version 1)
Quarter: 2022Q4

REPORT INFORMATION
  Report Type: Report from Study
  Country: CO (occurrence: CO)
  Receive Date: 20221227
  Receipt Date: 20221227
  Transmission Date: 20230113
  Serious: Yes (Other)
  Sender: FDA-Public Use
  Company Number: CO-ABBVIE-4250179

PATIENT
  Sex: Female
  Weight: 85 kg

DRUGS (2)
  1. HUMIRA [Suspect]
     Active Substance: ADALIMUMAB
     Indication: Uveitis
     Dosage: 40 MILLIGRAM
     Route: 058
     Dates: start: 20190703, end: 20221115
  2. CETIRIZINE [Concomitant]
     Active Substance: CETIRIZINE HYDROCHLORIDE
     Indication: Surgery
     Route: 048
     Dates: start: 202211, end: 202211

REACTIONS (6)
  - Sinusitis [Not Recovered/Not Resolved]
  - Pyrexia [Not Recovered/Not Resolved]
  - Epistaxis [Not Recovered/Not Resolved]
  - Malaise [Not Recovered/Not Resolved]
  - Headache [Not Recovered/Not Resolved]
  - Pituitary tumour benign [Not Recovered/Not Resolved]

NARRATIVE: CASE EVENT DATE: 20210101
